FAERS Safety Report 13552917 (Version 7)
Quarter: 2019Q4

REPORT INFORMATION
  Report Type: Spontaneous
  Country: US (occurrence: US)
  Receive Date: 20170517
  Receipt Date: 20191223
  Transmission Date: 20200122
  Serious: No
  Sender: FDA-Public Use
  Company Number: US-PFIZER INC-2017184660

PATIENT
  Age: 59 Year
  Sex: Female
  Weight: 68 kg

DRUGS (18)
  1. LYRICA [Suspect]
     Active Substance: PREGABALIN
     Indication: POLYNEUROPATHY
     Dosage: 375 MG, DAILY (5 CAPSULES A DAY)
  2. LYRICA [Suspect]
     Active Substance: PREGABALIN
     Dosage: 75 MG, 2X/DAY (TAKE 2 CAPSULES BY MOUTH TWO TIMES A DAY)
     Route: 048
  3. MOTRIN [Concomitant]
     Active Substance: IBUPROFEN
     Indication: PAIN
     Dosage: 800 MG, AS NEEDED (EVERY 8 HOURS AS NEEDED)
     Route: 048
     Dates: start: 20160930
  4. CETRIZINE [Concomitant]
     Active Substance: CETIRIZINE HYDROCHLORIDE
     Dosage: 10 MG, AS NEEDED (PRN, DAILY)
     Route: 048
  5. CYMBALTA [Concomitant]
     Active Substance: DULOXETINE HYDROCHLORIDE
     Dosage: 60 MG, DAILY
     Route: 048
     Dates: start: 20170402
  6. ADVIL [Concomitant]
     Active Substance: IBUPROFEN
     Indication: PYREXIA
  7. MOTRIN [Concomitant]
     Active Substance: IBUPROFEN
     Indication: PYREXIA
  8. PERCOCET [Concomitant]
     Active Substance: ACETAMINOPHEN\OXYCODONE HYDROCHLORIDE
     Indication: PAIN
     Dosage: 1 DF, AS NEEDED (OXYCODONE HYDROCHLORIDE 5 MG/PARACETAMOL 325 MG EVERY 6 HOURS)
     Route: 048
     Dates: start: 20170406, end: 20180405
  9. LYRICA [Suspect]
     Active Substance: PREGABALIN
     Indication: NEURALGIA
     Dosage: 150 MG, 2X/DAY (2 CAPSULES TWICE A DAY)
     Route: 048
     Dates: start: 2016
  10. ADVIL [Concomitant]
     Active Substance: IBUPROFEN
     Indication: PAIN
     Dosage: 800 MG, AS NEEDED (EVERY 8 HOURS AS NEEDED)
     Route: 048
     Dates: start: 20160930
  11. RHINOCORT AQUA [Concomitant]
     Active Substance: BUDESONIDE
     Dosage: 32 UG, 2X/DAY (32 MCG/ACTUATION NASAL SPRAY AT 1 SPRAY EACH NOSTRIL)
     Route: 045
     Dates: start: 20160914
  12. VALTREX [Concomitant]
     Active Substance: VALACYCLOVIR HYDROCHLORIDE
     Indication: ORAL HERPES
     Dosage: 2 G, AS NEEDED (TWICE DAILY FOR ONE DAY AS NEEDED )
     Route: 048
     Dates: start: 20150916
  13. LYRICA [Suspect]
     Active Substance: PREGABALIN
     Indication: BACK PAIN
     Dosage: 150 MG, 1X/DAY (TWO CAPSULE BY MOUTH NIGHTLY)
     Route: 048
     Dates: start: 20170405, end: 20170419
  14. LYRICA [Suspect]
     Active Substance: PREGABALIN
     Indication: NEUROPATHY PERIPHERAL
     Dosage: 150 MG, 1X/DAY (75 MG CAPSULE AT TWO CAPSULES BY MOUTH NIGHTLY, II PO QHS)
     Route: 048
     Dates: start: 20170419
  15. LYRICA [Suspect]
     Active Substance: PREGABALIN
     Dosage: UNK
  16. VITAMIN C [Concomitant]
     Active Substance: ASCORBIC ACID
     Dosage: 250 MG, 2X/DAY
     Route: 048
     Dates: start: 20160420
  17. VITAMIN D [Concomitant]
     Active Substance: VITAMIN D NOS
     Dosage: 50000 IU, WEEKLY
     Route: 048
     Dates: start: 20160914
  18. CONCERTA [Concomitant]
     Active Substance: METHYLPHENIDATE HYDROCHLORIDE
     Indication: HYPERSOMNIA
     Dosage: 36 MG, DAILY
     Route: 048
     Dates: start: 20170330

REACTIONS (1)
  - Somnolence [Recovering/Resolving]

NARRATIVE: CASE EVENT DATE: 2017
